FAERS Safety Report 5243618-9 (Version None)
Quarter: 2007Q1

REPORT INFORMATION
  Report Type: 
  Country: None (occurrence: None)
  Receive Date: 20070220
  Receipt Date: 20070220
  Transmission Date: 20070707
  Serious: Yes (Other)
  Sender: FDA-Public Use
  Company Number: None

PATIENT
  Age: 51 Year
  Sex: Female
  Weight: 104.3273 kg

DRUGS (16)
  1. SYMLIN [Suspect]
     Indication: DIABETES MELLITUS
     Dosage: 10 MCG  TID  SQ
     Route: 058
     Dates: start: 20070116, end: 20070216
  2. ADVAIR DISKUS 100/50 [Concomitant]
  3. ALLEGRA [Concomitant]
  4. ASTELIN [Concomitant]
  5. HUMALOG MIX [Concomitant]
  6. ATROVENT NS [Concomitant]
  7. COMBIVENT [Concomitant]
  8. DEMADEX [Concomitant]
  9. CYMBALTA [Concomitant]
  10. LISINOPRIL [Concomitant]
  11. NASONEX [Concomitant]
  12. NORCO [Concomitant]
  13. SPIRIVA [Concomitant]
  14. PROZAC [Concomitant]
  15. PHENERGAN HCL [Concomitant]
  16. SINGULAIR [Concomitant]

REACTIONS (5)
  - ABDOMINAL DISTENSION [None]
  - ABDOMINAL TENDERNESS [None]
  - HEPATIC STEATOSIS [None]
  - NAUSEA [None]
  - VOMITING [None]
